FAERS Safety Report 9099523 (Version 1)
Quarter: 2013Q1

REPORT INFORMATION
  Report Type: Spontaneous
  Country: US (occurrence: US)
  Receive Date: 20130214
  Receipt Date: 20130214
  Transmission Date: 20140127
  Serious: Yes (Death, Hospitalization, Other)
  Sender: FDA-Public Use
  Company Number: PHEH2013US003550

PATIENT
  Age: 88 Year
  Sex: Female

DRUGS (21)
  1. RECLAST [Suspect]
     Dosage: UNK UKN, UNK
     Route: 042
     Dates: start: 20110913
  2. CORDARONE [Concomitant]
     Dosage: 200 MG, BID
  3. CORDARONE [Concomitant]
     Dosage: 200 MG, QD
  4. CALCIUM [Concomitant]
     Dosage: 500 MG, UNK
  5. VITAMIN D [Concomitant]
     Dosage: 200 MG, BID
  6. LODOSYN [Concomitant]
     Dosage: 25 MG, QID (AT 08 AM, 12 PM, 4 PM, AND 8 PM )
  7. SINEMET [Concomitant]
     Dosage: AT 08 AM, 12 PM, 4 PM, AND 8 PM
  8. PROTONIX [Concomitant]
     Dosage: 40 MG, QD
  9. PLAVIX [Concomitant]
     Dosage: 75 MG, QD
  10. GLUCOSAMINE [Concomitant]
     Dosage: 500 MG, 1 BID
  11. MULTIVITAMIN [Concomitant]
     Dosage: UNK UKN, QD
  12. VITAMIN D3 [Concomitant]
     Dosage: 100 UNITS, QD
  13. COLACE [Concomitant]
     Dosage: 1 UKN, BID
  14. LUTEIN [Concomitant]
     Dosage: 25 MG, QD
     Route: 048
  15. ZINC [Concomitant]
     Dosage: UNK UKN, UNK
  16. MIRALAX [Concomitant]
     Dosage: 17 G, ON MONDAY, WEDENSDAY, AND FRIDAY
  17. MOM [Concomitant]
     Dosage: 30 MG, QD
  18. AMBIEN [Concomitant]
     Dosage: 5 MG, ONE HALF TABLET 2.5 MG AT BED TIME PRN
  19. COREG [Concomitant]
     Dosage: 3.125 MG, BID
     Route: 048
  20. MEGACE [Concomitant]
     Dosage: 40 MG, BID
     Route: 048
  21. EXELON PATCH [Concomitant]
     Dosage: 4.6 MG, QD

REACTIONS (20)
  - Coronary artery disease [Fatal]
  - Parkinson^s disease [Fatal]
  - Depressed level of consciousness [Fatal]
  - Confusional state [Fatal]
  - Acute myocardial infarction [Recovered/Resolved with Sequelae]
  - Supraventricular tachycardia [Recovered/Resolved with Sequelae]
  - Pneumonia aspiration [Recovered/Resolved with Sequelae]
  - Mental status changes [Unknown]
  - Aggression [Unknown]
  - Agitation [Unknown]
  - Delirium [Unknown]
  - Contusion [Unknown]
  - Dyslipidaemia [Unknown]
  - Hypokalaemia [Unknown]
  - Troponin increased [Unknown]
  - Anaemia [Unknown]
  - Normochromic normocytic anaemia [Unknown]
  - Musculoskeletal chest pain [Unknown]
  - Blood creatinine increased [Unknown]
  - Hypertension [Unknown]
